FAERS Safety Report 18682335 (Version 1)
Quarter: 2020Q4

REPORT INFORMATION
  Report Type: Spontaneous
  Country: FR (occurrence: FR)
  Receive Date: 20201230
  Receipt Date: 20201230
  Transmission Date: 20210114
  Serious: Yes (Hospitalization)
  Sender: FDA-Public Use
  Company Number: FR-ACCORD-212841

PATIENT
  Age: 74 Year
  Sex: Male
  Weight: 59 kg

DRUGS (1)
  1. PRAVASTATIN. [Suspect]
     Active Substance: PRAVASTATIN
     Indication: PRODUCT USED FOR UNKNOWN INDICATION
     Route: 048
     Dates: start: 2010, end: 20200727

REACTIONS (2)
  - Rhabdomyolysis [Recovered/Resolved]
  - Myositis [Recovered/Resolved]

NARRATIVE: CASE EVENT DATE: 20200727
